FAERS Safety Report 7048273-3 (Version None)
Quarter: 2010Q4

REPORT INFORMATION
  Report Type: 
  Country: None (occurrence: None)
  Receive Date: 20101015
  Receipt Date: 20101007
  Transmission Date: 20110411
  Serious: Yes (Hospitalization)
  Sender: FDA-Public Use
  Company Number: US-NAPPMUNDI-USA-2010-0046785

PATIENT
  Sex: Male
  Weight: 81.633 kg

DRUGS (11)
  1. OXYCONTIN [Suspect]
     Indication: PRODUCT USED FOR UNKNOWN INDICATION
     Dosage: 80 MG, TID
  2. DILAUDID [Concomitant]
     Indication: PAIN
  3. FENTANYL [Concomitant]
     Indication: PRODUCT USED FOR UNKNOWN INDICATION
     Dosage: UNK
  4. HUMIRA [Concomitant]
     Indication: PRODUCT USED FOR UNKNOWN INDICATION
  5. ZINAX [Concomitant]
     Indication: PRODUCT USED FOR UNKNOWN INDICATION
  6. METHELTRIXATE [Concomitant]
     Indication: PRODUCT USED FOR UNKNOWN INDICATION
  7. PENTASA [Concomitant]
     Indication: PRODUCT USED FOR UNKNOWN INDICATION
  8. DOXICICLIN [Concomitant]
     Indication: PRODUCT USED FOR UNKNOWN INDICATION
  9. TERIZIDONE [Concomitant]
     Indication: PRODUCT USED FOR UNKNOWN INDICATION
  10. WELLBATRIN [Concomitant]
     Indication: PRODUCT USED FOR UNKNOWN INDICATION
  11. PREDNISONE [Concomitant]
     Indication: PRODUCT USED FOR UNKNOWN INDICATION

REACTIONS (8)
  - ACTIVITIES OF DAILY LIVING IMPAIRED [None]
  - ANGIOPATHY [None]
  - DECREASED APPETITE [None]
  - DRUG HYPERSENSITIVITY [None]
  - PRODUCT FORMULATION ISSUE [None]
  - PRURITUS GENERALISED [None]
  - SCAR [None]
  - SKIN LESION [None]
